FAERS Safety Report 7250295-4 (Version None)
Quarter: 2011Q1

REPORT INFORMATION
  Report Type: 
  Country: None (occurrence: None)
  Receive Date: 20110121
  Receipt Date: 20110121
  Transmission Date: 20110831
  Serious: Yes (Death)
  Sender: FDA-Public Use
  Company Number: None

PATIENT
  Sex: Female
  Weight: 64 kg

DRUGS (2)
  1. ERIBULIN ESAI [Suspect]
     Indication: BREAST CANCER METASTATIC
     Dosage: 1.4 MG/M2 X 1.63 M2-2.28 MG D1, D8 IV DRIP
     Route: 041
     Dates: start: 20101230, end: 20110106
  2. ZOMETA [Concomitant]

REACTIONS (2)
  - FATIGUE [None]
  - NAUSEA [None]
